FAERS Safety Report 19659352 (Version 1)
Quarter: 2021Q3

REPORT INFORMATION
  Report Type: Spontaneous
  Country: CN (occurrence: CN)
  Receive Date: 20210805
  Receipt Date: 20210805
  Transmission Date: 20211014
  Serious: Yes (Other)
  Sender: FDA-Public Use
  Company Number: CN-009507513-2108CHN000436

PATIENT
  Age: 71 Year
  Sex: Male

DRUGS (1)
  1. TIENAM [Suspect]
     Active Substance: CILASTATIN SODIUM\IMIPENEM
     Indication: INFECTION
     Dosage: 500 MILLIGRAM, QD
     Route: 041
     Dates: start: 20210717, end: 20210717

REACTIONS (9)
  - Unresponsive to stimuli [Unknown]
  - Muscle twitching [Recovering/Resolving]
  - Respiratory rate increased [Unknown]
  - Pulse abnormal [Unknown]
  - Miosis [Unknown]
  - Blood pressure increased [Unknown]
  - Cold sweat [Unknown]
  - Pupillary reflex impaired [Unknown]
  - Loss of consciousness [Unknown]

NARRATIVE: CASE EVENT DATE: 20210717
